FAERS Safety Report 21282773 (Version 1)
Quarter: 2022Q3

REPORT INFORMATION
  Report Type: Spontaneous
  Country: JP (occurrence: JP)
  Receive Date: 20220901
  Receipt Date: 20220901
  Transmission Date: 20221027
  Serious: Yes (Other)
  Sender: FDA-Public Use
  Company Number: JP-AMGEN-JPNSP2022148474

PATIENT
  Age: 92 Year
  Sex: Male
  Weight: 35 kg

DRUGS (1)
  1. EVENITY [Suspect]
     Active Substance: ROMOSOZUMAB-AQQG
     Indication: Product used for unknown indication
     Dosage: 210 MILLIGRAM
     Route: 058
     Dates: end: 2022

REACTIONS (4)
  - Cerebral infarction [Unknown]
  - Diabetes mellitus [Unknown]
  - Renal impairment [Unknown]
  - Stress cardiomyopathy [Unknown]
